FAERS Safety Report 11943394 (Version 1)
Quarter: 2016Q1

REPORT INFORMATION
  Report Type: Spontaneous
  Country: SE (occurrence: SE)
  Receive Date: 20160125
  Receipt Date: 20160125
  Transmission Date: 20160526
  Serious: Yes (Hospitalization, Other)
  Sender: FDA-Public Use
  Company Number: SE-SHIRE-SE201600369

PATIENT
  Age: 24 Year
  Sex: Male

DRUGS (2)
  1. STESOLID [Suspect]
     Active Substance: DIAZEPAM
     Indication: PRODUCT USED FOR UNKNOWN INDICATION
     Dosage: UNK, UNKNOWN
     Route: 065
     Dates: start: 20151223, end: 20151223
  2. ELVANSE [Suspect]
     Active Substance: LISDEXAMFETAMINE DIMESYLATE
     Indication: PRODUCT USED FOR UNKNOWN INDICATION
     Dosage: 30 TABLETS, UNKNOWN
     Route: 048
     Dates: start: 20151223, end: 20151223

REACTIONS (5)
  - Abnormal behaviour [Unknown]
  - Intentional overdose [Recovered/Resolved]
  - Toxicity to various agents [Unknown]
  - Intentional self-injury [Unknown]
  - Mental disorder [Unknown]

NARRATIVE: CASE EVENT DATE: 20151223
